FAERS Safety Report 10230746 (Version 1)
Quarter: 2014Q2

REPORT INFORMATION
  Report Type: Report from Study
  Country: BR (occurrence: BR)
  Receive Date: 20140611
  Receipt Date: 20140611
  Transmission Date: 20141212
  Serious: Yes (Other)
  Sender: FDA-Public Use
  Company Number: BR-ABBVIE-14P-020-1244237-00

PATIENT
  Sex: Female
  Weight: 73 kg

DRUGS (4)
  1. HUMIRA [Suspect]
     Indication: RHEUMATOID ARTHRITIS
     Route: 058
     Dates: start: 20131217
  2. ARAVA [Concomitant]
     Indication: RHEUMATOID ARTHRITIS
     Dosage: ONCE A DAY
     Route: 048
     Dates: start: 201401
  3. DEFLAZACORT [Concomitant]
     Indication: RHEUMATOID ARTHRITIS
     Dosage: FORM STRENGTH: DEFLAZACORT 15 MG + FAMOTIDINE 30 MG (MAGISTRAL PREPARATION), TWICE A DAY
     Route: 048
     Dates: start: 201301
  4. MESALAZINE [Concomitant]
     Indication: GASTROINTESTINAL DISORDER
     Dosage: ONCE A DAY
     Route: 048
     Dates: start: 201401

REACTIONS (1)
  - Carpal tunnel syndrome [Recovering/Resolving]
